FAERS Safety Report 9990514 (Version 2)
Quarter: 2014Q2

REPORT INFORMATION
  Report Type: Spontaneous
  Country: US (occurrence: US)
  Receive Date: 20140310
  Receipt Date: 20140416
  Transmission Date: 20141212
  Serious: Yes (Hospitalization)
  Sender: FDA-Public Use
  Company Number: US-PFIZER INC-2014064447

PATIENT
  Age: 73 Year
  Sex: 0

DRUGS (9)
  1. EFFEXOR [Suspect]
     Dosage: UNK
  2. ERYTHROMYCIN [Suspect]
     Dosage: UNK
  3. CYMBALTA [Suspect]
     Dosage: UNK
  4. AMBIEN [Suspect]
     Dosage: UNK
  5. LUNESTA [Suspect]
     Dosage: UNK
  6. LOTREL [Suspect]
     Dosage: UNK
  7. MOTRIN [Suspect]
     Dosage: UNK
  8. REMERON [Suspect]
     Dosage: UNK
  9. TRAZODONE [Suspect]
     Dosage: UNK

REACTIONS (2)
  - Urinary tract infection [Unknown]
  - Drug hypersensitivity [Unknown]
